FAERS Safety Report 5425555-X (Version None)
Quarter: 2007Q3

REPORT INFORMATION
  Report Type: 
  Country: None (occurrence: None)
  Receive Date: 20070824
  Receipt Date: 20070814
  Transmission Date: 20080115
  Serious: Yes (Other)
  Sender: FDA-Public Use
  Company Number: US-PFIZER INC-2007060911

PATIENT
  Sex: Female
  Weight: 46.3 kg

DRUGS (4)
  1. CHANTIX [Suspect]
     Indication: SMOKING CESSATION THERAPY
     Dates: start: 20070616, end: 20070710
  2. INSULIN [Concomitant]
  3. ASPIRIN [Concomitant]
  4. POLYETHYLENE GLYCOL [Concomitant]

REACTIONS (1)
  - BLOOD GLUCOSE INCREASED [None]
